FAERS Safety Report 5787843-7 (Version None)
Quarter: 2008Q2

REPORT INFORMATION
  Report Type: 
  Country: None (occurrence: None)
  Receive Date: 20080624
  Receipt Date: 20080624
  Transmission Date: 20081010
  Serious: Yes (Other)
  Sender: FDA-Public Use
  Company Number: None

PATIENT
  Age: 43 Year
  Sex: Female
  Weight: 99.7913 kg

DRUGS (1)
  1. COPAXONE [Suspect]
     Dosage: 20 MG DAILY SQ
     Route: 058
     Dates: start: 20071101, end: 20080512

REACTIONS (6)
  - ABDOMINAL PAIN [None]
  - COUGH [None]
  - DIZZINESS [None]
  - NAUSEA [None]
  - PAIN IN EXTREMITY [None]
  - PALPITATIONS [None]
